FAERS Safety Report 4475851-8 (Version None)
Quarter: 2004Q3

REPORT INFORMATION
  Report Type: 
  Country: None (occurrence: None)
  Receive Date: 20040923
  Receipt Date: 20040819
  Transmission Date: 20050211
  Serious: No
  Sender: FDA-Public Use
  Company Number: USA040772288

PATIENT
  Age: 72 Year
  Sex: Female
  Weight: 50 kg

DRUGS (8)
  1. FORTEO [Suspect]
     Indication: OSTEOPOROSIS
     Dosage: 20 UG/1 DAY
     Dates: start: 20031001
  2. FOSAMAX [Concomitant]
  3. NORVASC [Concomitant]
  4. LANOXIN [Concomitant]
  5. SKELAXIN [Concomitant]
  6. BEXTRA [Concomitant]
  7. CALCIUM [Concomitant]
  8. MULTIVITAMIN [Concomitant]

REACTIONS (10)
  - ARTHRALGIA [None]
  - BLOOD CALCIUM INCREASED [None]
  - BONE PAIN [None]
  - CHEST WALL PAIN [None]
  - DECREASED APPETITE [None]
  - DIZZINESS [None]
  - MALAISE [None]
  - NAUSEA [None]
  - PAIN EXACERBATED [None]
  - PAIN IN EXTREMITY [None]
